FAERS Safety Report 5153938-4 (Version None)
Quarter: 2006Q4

REPORT INFORMATION
  Report Type: 
  Country: None (occurrence: None)
  Receive Date: 20061120
  Receipt Date: 20061107
  Transmission Date: 20070319
  Serious: Yes (Other)
  Sender: FDA-Public Use
  Company Number: PHBS2006BR17386

PATIENT
  Sex: Male

DRUGS (1)
  1. ELIDEL [Suspect]
     Indication: VITILIGO
     Dosage: UNK, BID
     Route: 061

REACTIONS (3)
  - APPLICATION SITE IRRITATION [None]
  - DYSURIA [None]
  - PENIS DISORDER [None]
